FAERS Safety Report 7609815-X (Version None)
Quarter: 2011Q3

REPORT INFORMATION
  Report Type: 
  Country: None (occurrence: None)
  Receive Date: 20110714
  Receipt Date: 20110701
  Transmission Date: 20111222
  Serious: Yes (Disabling)
  Sender: FDA-Public Use
  Company Number: CA-MYLANLABS-2011S1014006

PATIENT
  Age: 5 Year
  Sex: Female

DRUGS (5)
  1. TACROLIMUS [Suspect]
     Indication: IMMUNOSUPPRESSION
     Dosage: TARGET LEVELS 10-12 MG/L; LATER REDUCED TO 5-7 MG/L
     Route: 065
     Dates: start: 20070101
  2. MYCOPHENOLATE MOFETIL [Suspect]
     Indication: IMMUNOSUPPRESSION
     Dosage: TARGET LEVEL 1-3 MICROG/ML
     Route: 065
     Dates: start: 20070101
  3. SIROLIMUS [Suspect]
     Indication: IMMUNOSUPPRESSION
     Route: 065
     Dates: start: 20080101
  4. TACROLIMUS [Suspect]
     Dosage: TARGET LEVELS 5-7 MG/L
     Route: 065
     Dates: start: 20070101
  5. AZATHIOPRINE [Suspect]
     Indication: IMMUNOSUPPRESSION
     Route: 065
     Dates: start: 20080101

REACTIONS (1)
  - TRICHOSTASIS SPINULOSA [None]
